FAERS Safety Report 16402569 (Version 1)
Quarter: 2019Q2

REPORT INFORMATION
  Report Type: Spontaneous
  Country: US (occurrence: US)
  Receive Date: 20190607
  Receipt Date: 20190607
  Transmission Date: 20190711
  Serious: No
  Sender: FDA-Public Use
  Company Number: US-MALLINCKRODT-T201804856

PATIENT
  Age: 58 Year
  Sex: Female

DRUGS (2)
  1. HYDROCODONE/ACETAMINOPHEN [Suspect]
     Active Substance: ACETAMINOPHEN\HYDROCODONE
     Indication: OROPHARYNGEAL PAIN
     Dosage: 5/325 MG, 2 PILLS IN THE SPACE OF 8 HOURS
     Route: 048
     Dates: start: 20180821, end: 20180821
  2. HYDROCODONE/ACETAMINOPHEN [Suspect]
     Active Substance: ACETAMINOPHEN\HYDROCODONE
     Indication: PHARYNGEAL SWELLING

REACTIONS (7)
  - Hepatic pain [Unknown]
  - Nausea [Unknown]
  - Pruritus [Unknown]
  - Paraesthesia [Unknown]
  - Hallucination [Unknown]
  - Headache [Unknown]
  - Rash [Unknown]
